FAERS Safety Report 7900346-6 (Version None)
Quarter: 2011Q4

REPORT INFORMATION
  Report Type: 
  Country: None (occurrence: None)
  Receive Date: 20111108
  Receipt Date: 20111105
  Transmission Date: 20120403
  Serious: No
  Sender: FDA-Public Use
  Company Number: US-PFIZER INC-2011270848

PATIENT
  Sex: Male
  Weight: 64.399 kg

DRUGS (2)
  1. ZITHROMAX [Suspect]
     Indication: CYST
     Dosage: 250 MG, 2X/DAY
     Route: 048
     Dates: start: 20111031
  2. ZITHROMAX [Suspect]
     Dosage: 250 MG, 1X/DAY
     Route: 048
     Dates: start: 20111101, end: 20111105

REACTIONS (4)
  - BACK PAIN [None]
  - PYREXIA [None]
  - TOOTH EXTRACTION [None]
  - NIGHT SWEATS [None]
